FAERS Safety Report 17267457 (Version 1)
Quarter: 2020Q1

REPORT INFORMATION
  Report Type: Spontaneous
  Country: US (occurrence: US)
  Receive Date: 20200114
  Receipt Date: 20200114
  Transmission Date: 20200409
  Serious: No
  Sender: FDA-Public Use
  Company Number: US-TEVA-2020-US-1168658

PATIENT
  Sex: Male

DRUGS (9)
  1. COPAXONE [Suspect]
     Active Substance: GLATIRAMER ACETATE
     Indication: MULTIPLE SCLEROSIS
     Dosage: COPAXONE 40 MG 3 TIME PER WEEK
     Route: 058
     Dates: start: 20180601
  2. AMITRIPTYLIN [Concomitant]
     Active Substance: AMITRIPTYLINE
  3. TAMSULOSIN [Concomitant]
     Active Substance: TAMSULOSIN
  4. AMITIZA [Concomitant]
     Active Substance: LUBIPROSTONE
  5. PREGABALIN. [Concomitant]
     Active Substance: PREGABALIN
  6. BACLOFEN. [Concomitant]
     Active Substance: BACLOFEN
  7. LINZESS [Concomitant]
     Active Substance: LINACLOTIDE
  8. DALFAMPRIDINE. [Concomitant]
     Active Substance: DALFAMPRIDINE
  9. SUCRALFATE. [Concomitant]
     Active Substance: SUCRALFATE

REACTIONS (1)
  - Movement disorder [Not Recovered/Not Resolved]
